FAERS Safety Report 8851277 (Version 2)
Quarter: 2012Q4

REPORT INFORMATION
  Report Type: 
  Country: US (occurrence: US)
  Receive Date: 20121019
  Receipt Date: 20121213
  Transmission Date: 20130627
  Serious: No
  Sender: FDA-Public Use
  Company Number: US-PFIZER INC-2012259813

PATIENT
  Age: 81 Year
  Sex: Female
  Weight: 72.56 kg

DRUGS (18)
  1. METHYLPREDNISOLONE ACETATE [Suspect]
     Indication: BACK PAIN
     Dosage: 160 mg, single
     Route: 037
     Dates: start: 20111002, end: 20111002
  2. METHYLPREDNISOLONE ACETATE [Suspect]
     Indication: SACROILIITIS
  3. ALLOPURINOL [Concomitant]
     Dosage: 300 mg, Daily
  4. ASA [Concomitant]
     Dosage: 81 mg, Daily
  5. CALCIUM [Concomitant]
     Dosage: 1500 mg, daily
  6. CHONDROITIN/GLUCOSAMINE [Concomitant]
     Dosage: 2-3 tablets daily
  7. FISH OIL [Concomitant]
     Dosage: 1000 mg, 2x/day
  8. ADVIL [Concomitant]
     Dosage: 200 mg, as needed
  9. ACETAMINOPHEN/TRAMADOL HYDROCHLORIDE [Concomitant]
     Dosage: 325/37.5mg, As needed
  10. ZALEPLON [Concomitant]
     Dosage: 5 mg, as needed
  11. BISOPROLOL FUMARATE [Concomitant]
     Dosage: 10/6.25mg, daily
  12. LIPITOR [Concomitant]
     Dosage: 20 mg, Daily
  13. CENTRUM [Concomitant]
     Dosage: UNK, Daily
  14. VITAMIN C [Concomitant]
     Dosage: 500 mg, daily
  15. OCUVITE LUTEIN [Concomitant]
     Dosage: UNK, daily
  16. TOVIAZ [Concomitant]
     Dosage: 4 mg, daily
  17. METFORMIN [Concomitant]
     Dosage: 1000 mg, 2x/day
  18. VITAMIN B6 [Concomitant]
     Dosage: 100 mg, daily

REACTIONS (3)
  - Incorrect route of drug administration [Unknown]
  - Headache [Not Recovered/Not Resolved]
  - Neck pain [Not Recovered/Not Resolved]
